FAERS Safety Report 11930904 (Version 1)
Quarter: 2016Q1

REPORT INFORMATION
  Report Type: Spontaneous
  Country: US (occurrence: None)
  Receive Date: 20160120
  Receipt Date: 20160120
  Transmission Date: 20160526
  Serious: Yes (Hospitalization)
  Sender: FDA-Public Use
  Company Number: None

PATIENT
  Age: 73 Year
  Sex: Female
  Weight: 80 kg

DRUGS (2)
  1. BENDAMUSTINE  HYDROCHLORIDE [Suspect]
     Active Substance: BENDAMUSTINE HYDROCHLORIDE
     Dates: end: 20151217
  2. RITUXIMAB (MOAB C2B8 ANTI CD20, CHIMERIC) [Suspect]
     Active Substance: RITUXIMAB
     Dates: end: 20151215

REACTIONS (7)
  - Pneumonia [None]
  - Fall [None]
  - Hyperkalaemia [None]
  - Face injury [None]
  - Arthralgia [None]
  - Contusion [None]
  - Loss of consciousness [None]

NARRATIVE: CASE EVENT DATE: 20160103
